FAERS Safety Report 6555362-6 (Version None)
Quarter: 2010Q1

REPORT INFORMATION
  Report Type: 
  Country: None (occurrence: None)
  Receive Date: 20100128
  Receipt Date: 20090710
  Transmission Date: 20100710
  Serious: No
  Sender: FDA-Public Use
  Company Number: A0797666A

PATIENT
  Age: 50 Year
  Sex: Male

DRUGS (10)
  1. BUPROPION [Suspect]
     Indication: ANXIETY
     Dosage: 150MG TWICE PER DAY
     Dates: start: 20080601
  2. CLONAZEPAM [Suspect]
     Indication: SLEEP DISORDER
     Dosage: 1MG TWICE PER DAY
     Dates: start: 20081001
  3. POTASSIUM CITRATE [Concomitant]
     Indication: PROPHYLAXIS
     Dosage: 1080MG PER DAY
     Route: 048
  4. OMEPRAZOLE [Concomitant]
     Indication: DRUG USE FOR UNKNOWN INDICATION
     Route: 048
  5. METFORMIN HCL [Concomitant]
     Indication: DIABETES MELLITUS
     Dosage: 850MG THREE TIMES PER DAY
     Route: 048
  6. BENAZEPRIL HYDROCHLORIDE [Concomitant]
     Indication: DIABETES MELLITUS
     Route: 048
  7. ACEBUTOLOL [Concomitant]
     Dosage: 200MG TWICE PER DAY
     Route: 048
  8. EZETIMIBE [Concomitant]
     Dosage: 10MG PER DAY
     Route: 048
  9. BYETTA [Concomitant]
     Dosage: 10MG TWICE PER DAY
     Route: 048
  10. ESCITALOPRAM OXALATE [Concomitant]
     Route: 048

REACTIONS (2)
  - BLOOD URINE PRESENT [None]
  - HAEMATOSPERMIA [None]
